FAERS Safety Report 12537883 (Version 1)
Quarter: 2016Q3

REPORT INFORMATION
  Report Type: Spontaneous
  Country: US (occurrence: US)
  Receive Date: 20160707
  Receipt Date: 20160707
  Transmission Date: 20161109
  Serious: No
  Sender: FDA-Public Use
  Company Number: US-009507513-1607USA002273

PATIENT
  Age: 28 Year
  Sex: Female
  Weight: 72.11 kg

DRUGS (1)
  1. NEXPLANON [Suspect]
     Active Substance: ETONOGESTREL
     Indication: CONTRACEPTION
     Dosage: EVERY 3 YEARS 68 MG
     Route: 059
     Dates: start: 20160509, end: 20160620

REACTIONS (2)
  - Intentional product misuse [Recovered/Resolved]
  - Implant site irritation [Unknown]

NARRATIVE: CASE EVENT DATE: 20160620
